FAERS Safety Report 6590088-4 (Version None)
Quarter: 2010Q1

REPORT INFORMATION
  Report Type: 
  Country: None (occurrence: None)
  Receive Date: 20100219
  Receipt Date: 20100216
  Transmission Date: 20100710
  Serious: Yes (Death, Hospitalization)
  Sender: FDA-Public Use
  Company Number: PHHY2009MX58434

PATIENT
  Age: 92 Year
  Sex: Female

DRUGS (1)
  1. CO-DIOVAN [Suspect]
     Indication: HYPERTENSION
     Dosage: 1 TABLET (80/12.5  MG) PER DAY
     Dates: start: 20020801

REACTIONS (6)
  - ANAEMIA [None]
  - DEHYDRATION [None]
  - GASTROENTERITIS BACTERIAL [None]
  - GASTROINTESTINAL INFECTION [None]
  - INFARCTION [None]
  - RESPIRATORY ARREST [None]
